FAERS Safety Report 8940095 (Version 1)
Quarter: 2012Q4

REPORT INFORMATION
  Report Type: 
  Country: US (occurrence: US)
  Receive Date: 20121201
  Receipt Date: 20121201
  Transmission Date: 20130627
  Serious: No
  Sender: FDA-Public Use
  Company Number: US-ASTRAZENECA-2012SE88667

PATIENT
  Age: 76 Year
  Sex: Female
  Weight: 69.4 kg

DRUGS (13)
  1. NEXIUM [Suspect]
     Indication: GASTROOESOPHAGEAL REFLUX DISEASE
     Route: 048
     Dates: start: 2004, end: 2007
  2. NEXIUM [Suspect]
     Indication: GASTROOESOPHAGEAL REFLUX DISEASE
     Route: 048
  3. METOPROLOL [Suspect]
     Route: 048
  4. DOXYCYCLINE [Concomitant]
  5. ASTORVASTAIN [Concomitant]
  6. FLUOXETINE HCL [Concomitant]
  7. MAGNESIUM OXIDE [Concomitant]
  8. TRAZADONE [Concomitant]
  9. FAMOTIDINE [Concomitant]
  10. RAMIPRIL [Concomitant]
  11. JANUVIA [Concomitant]
  12. FERROUS SULFATE [Concomitant]
  13. PERCOCET [Concomitant]

REACTIONS (2)
  - Regurgitation [Not Recovered/Not Resolved]
  - Off label use [Recovering/Resolving]
